FAERS Safety Report 25040926 (Version 4)
Quarter: 2025Q1

REPORT INFORMATION
  Report Type: Spontaneous
  Country: ES (occurrence: ES)
  Receive Date: 20250305
  Receipt Date: 20250320
  Transmission Date: 20250408
  Serious: Yes (Death, Other)
  Sender: BRISTOL-MYERS SQUIBB COMPANY
  Company Number: ES-IPSEN Group, Research and Development-2025-04646

PATIENT
  Sex: Male

DRUGS (10)
  1. NIVOLUMAB [Suspect]
     Active Substance: NIVOLUMAB
     Indication: Metastatic renal cell carcinoma
     Dates: end: 202301
  2. CABOMETYX [Suspect]
     Active Substance: CABOZANTINIB S-MALATE
     Indication: Metastatic renal cell carcinoma
     Dates: start: 202008
  3. CABOMETYX [Suspect]
     Active Substance: CABOZANTINIB S-MALATE
     Dates: end: 202301
  4. CABOMETYX [Suspect]
     Active Substance: CABOZANTINIB S-MALATE
     Dosage: ADJUSTED DOSE OF 40 MG ON ALTERNATE DAYS
     Dates: start: 202404
  5. CABOMETYX [Suspect]
     Active Substance: CABOZANTINIB S-MALATE
  6. CABOMETYX [Suspect]
     Active Substance: CABOZANTINIB S-MALATE
  7. CABOMETYX [Suspect]
     Active Substance: CABOZANTINIB S-MALATE
  8. SUNITINIB MALATE [Suspect]
     Active Substance: SUNITINIB MALATE
     Indication: Metastatic renal cell carcinoma
     Dosage: 37.5 MG 1 TABLET DAILY FOR 4 WEEKS AND 2 WEEKS OFF
     Dates: start: 202010
  9. SUNITINIB MALATE [Suspect]
     Active Substance: SUNITINIB MALATE
     Dosage: 37.5 MG 1 TABLET FOR 2 WEEKS AND 1 WEEK OFF
     Dates: start: 202012, end: 202103
  10. SUNITINIB MALATE [Suspect]
     Active Substance: SUNITINIB MALATE
     Dosage: 50 MG 1 TABLET DAILY FOR 4 WEEKS AND 2 WEEKS

REACTIONS (3)
  - Renal impairment [Fatal]
  - Malignant neoplasm progression [Fatal]
  - Palmar-plantar erythrodysaesthesia syndrome [Recovered/Resolved]

NARRATIVE: CASE EVENT DATE: 20210301
